FAERS Safety Report 6716914-3 (Version None)
Quarter: 2010Q2

REPORT INFORMATION
  Report Type: 
  Country: None (occurrence: None)
  Receive Date: 20100510
  Receipt Date: 20100504
  Transmission Date: 20101027
  Serious: Yes (Life-Threatening, Hospitalization, Other)
  Sender: FDA-Public Use
  Company Number: GB-BAYER-201019071GPV

PATIENT
  Age: 67 Year
  Sex: Female
  Weight: 73 kg

DRUGS (52)
  1. SORAFENIB [Suspect]
     Indication: COLORECTAL CANCER STAGE IV
     Dosage: UNIT DOSE: 400 MG
     Dates: start: 20100120, end: 20100202
  2. SORAFENIB [Suspect]
     Dosage: UNIT DOSE: 200 MG
     Dates: start: 20100309, end: 20100312
  3. OXALIPLATIN [Suspect]
     Indication: COLORECTAL CANCER STAGE IV
     Dates: start: 20100205, end: 20100205
  4. OXALIPLATIN [Suspect]
     Dates: start: 20100120, end: 20100120
  5. LEUCOVORIN CALCIUM [Suspect]
     Indication: COLORECTAL CANCER METASTATIC
     Dates: start: 20100205, end: 20100205
  6. LEUCOVORIN CALCIUM [Suspect]
     Dates: start: 20100219, end: 20100219
  7. LEUCOVORIN CALCIUM [Suspect]
     Dates: start: 20100120, end: 20100120
  8. FLUOROURACIL [Suspect]
     Indication: COLORECTAL CANCER STAGE IV
     Dosage: CONTINUOUS INFUSION
     Route: 042
     Dates: start: 20100120, end: 20100122
  9. FLUOROURACIL [Suspect]
     Dosage: CONTINUOUS INFUSION
     Route: 042
     Dates: start: 20100205, end: 20100207
  10. FLUOROURACIL [Suspect]
     Dosage: CONTINUOUS INFUSION
     Route: 042
     Dates: start: 20100219, end: 20100221
  11. FLUOROURACIL [Suspect]
     Route: 040
     Dates: start: 20100120, end: 20100120
  12. FLUOROURACIL [Suspect]
     Route: 040
     Dates: start: 20100205, end: 20100205
  13. FLUOROURACIL [Suspect]
     Route: 040
     Dates: start: 20100219, end: 20100219
  14. BENDROFLUMETHIAZIDE [Concomitant]
     Indication: HYPERTENSION
     Dates: start: 20040101
  15. ADALAT [Concomitant]
     Indication: HYPERTENSION
     Dates: start: 20040101
  16. CITALOPRAM HYDROBROMIDE [Concomitant]
     Indication: DEPRESSION
     Dates: start: 20090101
  17. GLIMEPIRIDE [Concomitant]
     Indication: TYPE 2 DIABETES MELLITUS
     Dates: start: 20060101
  18. METFORMIN HYDROCHLORIDE [Concomitant]
     Indication: TYPE 2 DIABETES MELLITUS
     Dates: start: 20060101
  19. GABAPENTIN [Concomitant]
     Indication: NEURALGIA
     Dates: start: 20050901
  20. CO-DANTHRAMER [Concomitant]
     Indication: CONSTIPATION
     Dates: start: 20080701
  21. TEMAZEPAM [Concomitant]
     Indication: INSOMNIA
     Dates: start: 19840101
  22. TRIMETHOPRIM [Concomitant]
     Indication: URINARY TRACT INFECTION
     Dates: start: 20100115, end: 20100120
  23. ONDANSETRON [Concomitant]
     Indication: PROPHYLAXIS OF NAUSEA AND VOMITING
     Dates: start: 20100205, end: 20100205
  24. ONDANSETRON [Concomitant]
     Dates: start: 20100120, end: 20100120
  25. ONDANSETRON [Concomitant]
     Dates: start: 20100120, end: 20100123
  26. ONDANSETRON [Concomitant]
     Dates: start: 20100219, end: 20100222
  27. ONDANSETRON [Concomitant]
     Dates: start: 20100219, end: 20100219
  28. ONDANSETRON [Concomitant]
     Dates: start: 20100205, end: 20100208
  29. DEXAMETHASONE [Concomitant]
     Indication: PROPHYLAXIS OF NAUSEA AND VOMITING
     Dates: start: 20100219, end: 20100222
  30. DEXAMETHASONE [Concomitant]
     Dates: start: 20100219, end: 20100219
  31. DEXAMETHASONE [Concomitant]
     Dates: start: 20100205, end: 20100208
  32. DEXAMETHASONE [Concomitant]
     Dates: start: 20100120, end: 20100120
  33. DEXAMETHASONE [Concomitant]
     Dates: start: 20100205, end: 20100205
  34. DEXAMETHASONE [Concomitant]
     Dates: start: 20100120, end: 20100123
  35. ASPIRIN [Concomitant]
     Indication: CARDIOVASCULAR DISORDER
     Dates: start: 20040101
  36. DOMPERIDONE [Concomitant]
     Indication: PROPHYLAXIS OF NAUSEA AND VOMITING
     Dates: start: 20100120, end: 20100127
  37. DOMPERIDONE [Concomitant]
     Dates: start: 20100219, end: 20100226
  38. DOMPERIDONE [Concomitant]
     Dates: start: 20100205, end: 20100212
  39. LOPERAMIDE [Concomitant]
     Indication: PROPHYLAXIS AGAINST DIARRHOEA
     Dates: start: 20100120, end: 20100127
  40. LOPERAMIDE [Concomitant]
     Dates: start: 20100205, end: 20100212
  41. LOPERAMIDE [Concomitant]
     Dates: start: 20100219, end: 20100226
  42. CHLORHEXIDINE 0.2% MOUTHWASH [Concomitant]
     Indication: PROPHYLAXIS
     Dates: start: 20100205, end: 20100212
  43. CHLORHEXIDINE 0.2% MOUTHWASH [Concomitant]
     Dates: start: 20100219, end: 20100226
  44. CHLORHEXIDINE 0.2% MOUTHWASH [Concomitant]
     Dates: start: 20100120, end: 20100127
  45. LEVOMEPROMAZINE [Concomitant]
     Indication: PROPHYLAXIS OF NAUSEA AND VOMITING
     Dates: start: 20100205
  46. NYSTATIN PROHPYLAXIS [Concomitant]
     Indication: DRUG USE FOR UNKNOWN INDICATION
     Dates: start: 20100203
  47. DIFFLAM MOUTHWASH [Concomitant]
     Indication: DRUG USE FOR UNKNOWN INDICATION
     Dates: start: 20100203
  48. FEXOFENADINE HCL [Concomitant]
     Indication: DRUG USE FOR UNKNOWN INDICATION
     Dates: start: 20100205
  49. ACTRAPID [Concomitant]
     Indication: DIABETES MELLITUS
     Dosage: 2 TO 4 UNITS
     Dates: start: 20100120, end: 20100122
  50. ACTRAPID [Concomitant]
     Dosage: 2 TO 6 UNITS
     Dates: start: 20100205, end: 20100207
  51. DICLOFENAC GEL [Concomitant]
     Indication: DRUG USE FOR UNKNOWN INDICATION
     Dosage: 3 APPLICATIONS
     Dates: start: 20100206, end: 20100211
  52. CYCLIZINE [Concomitant]
     Indication: DRUG USE FOR UNKNOWN INDICATION
     Dates: start: 20100312

REACTIONS (1)
  - PULMONARY EMBOLISM [None]
